FAERS Safety Report 5358036-2 (Version None)
Quarter: 2007Q2

REPORT INFORMATION
  Report Type: 
  Country: None (occurrence: None)
  Receive Date: 20070530
  Receipt Date: 20070307
  Transmission Date: 20071010
  Serious: Yes (Hospitalization)
  Sender: FDA-Public Use
  Company Number: US200611003715

PATIENT
  Age: 37 Year
  Sex: Male
  Weight: 84.4 kg

DRUGS (2)
  1. ZYPREXA [Suspect]
     Dosage: 10 MG, ORAL, 30 MG, ORAL
     Route: 048
     Dates: start: 19960101
  2. CLOZARIL [Concomitant]

REACTIONS (7)
  - BLOOD CHOLESTEROL ABNORMAL [None]
  - DIABETES MELLITUS NON-INSULIN-DEPENDENT [None]
  - EMOTIONAL DISTRESS [None]
  - HYPERTENSION [None]
  - HYPOGLYCAEMIA [None]
  - METABOLIC DISORDER [None]
  - PRESCRIBED OVERDOSE [None]
